FAERS Safety Report 13254849 (Version 1)
Quarter: 2017Q1

REPORT INFORMATION
  Report Type: Spontaneous
  Country: US (occurrence: US)
  Receive Date: 20170221
  Receipt Date: 20170221
  Transmission Date: 20170428
  Serious: No
  Sender: FDA-Public Use
  Company Number: US-PFIZER INC-2017069020

PATIENT
  Sex: Female

DRUGS (3)
  1. GLUCOTROL [Suspect]
     Active Substance: GLIPIZIDE
     Dosage: UNK
  2. GLUCOTROL [Suspect]
     Active Substance: GLIPIZIDE
     Dosage: 10 MG, DAILY
     Route: 048
     Dates: start: 20170113
  3. GLUCOTROL XL [Suspect]
     Active Substance: GLIPIZIDE

REACTIONS (4)
  - Contraindicated product administered [Unknown]
  - Dizziness [Unknown]
  - Headache [Unknown]
  - Drug hypersensitivity [Unknown]
